FAERS Safety Report 6771939-7 (Version None)
Quarter: 2010Q2

REPORT INFORMATION
  Report Type: 
  Country: None (occurrence: None)
  Receive Date: 20100616
  Receipt Date: 20100609
  Transmission Date: 20101027
  Serious: Yes (Other)
  Sender: FDA-Public Use
  Company Number: US-JNJFOC-20100603749

PATIENT
  Sex: Female
  Weight: 54.89 kg

DRUGS (2)
  1. DURAGESIC-100 [Suspect]
     Indication: PAIN
     Dosage: NDC# 50458-035-05
     Route: 062
  2. DURAGESIC-100 [Suspect]
     Dosage: NDC# 50458-035-05
     Route: 062

REACTIONS (6)
  - FALL [None]
  - PRODUCT ADHESION ISSUE [None]
  - PSORIATIC ARTHROPATHY [None]
  - SPINAL DISORDER [None]
  - STAPHYLOCOCCAL INFECTION [None]
  - WRONG TECHNIQUE IN DRUG USAGE PROCESS [None]
